FAERS Safety Report 9554119 (Version 2)
Quarter: 2013Q4

REPORT INFORMATION
  Report Type: Spontaneous
  Country: GB (occurrence: GB)
  Receive Date: 20130925
  Receipt Date: 20131002
  Transmission Date: 20140711
  Serious: Yes (Other)
  Sender: FDA-Public Use
  Company Number: GB-BAYER-2013-114394

PATIENT
  Age: 32 Year
  Sex: Female
  Weight: 54 kg

DRUGS (2)
  1. MIRENA [Suspect]
     Dosage: 20 MCG/24HR, CONT
     Route: 015
     Dates: start: 201109
  2. CIPROFLOXACIN [Concomitant]
     Dosage: 500 MG, BID
     Dates: start: 20130711, end: 20130716

REACTIONS (17)
  - Alopecia [Not Recovered/Not Resolved]
  - Scab [None]
  - Dry skin [None]
  - Pruritus [None]
  - Rash papular [Not Recovered/Not Resolved]
  - Facial pain [Not Recovered/Not Resolved]
  - Dermatitis acneiform [Not Recovered/Not Resolved]
  - Psychiatric symptom [None]
  - Weight increased [None]
  - Breast cyst [None]
  - Breast abscess [None]
  - Mood altered [None]
  - Depression [Not Recovered/Not Resolved]
  - Amenorrhoea [None]
  - Ovulation pain [Not Recovered/Not Resolved]
  - Androgens increased [None]
  - Crying [None]
